FAERS Safety Report 7812532-4 (Version None)
Quarter: 2011Q4

REPORT INFORMATION
  Report Type: 
  Country: None (occurrence: None)
  Receive Date: 20111013
  Receipt Date: 20111012
  Transmission Date: 20120403
  Serious: Yes (Other)
  Sender: FDA-Public Use
  Company Number: US-PFIZER INC-2011244148

PATIENT
  Sex: Male

DRUGS (1)
  1. QUINAPRIL HCL [Suspect]
     Dosage: UNK

REACTIONS (3)
  - TREMOR [None]
  - FLUSHING [None]
  - HYPERTENSION [None]
